FAERS Safety Report 6168665-4 (Version None)
Quarter: 2009Q2

REPORT INFORMATION
  Report Type: 
  Country: None (occurrence: None)
  Receive Date: 20090427
  Receipt Date: 20090417
  Transmission Date: 20091009
  Serious: Yes (Life-Threatening, Hospitalization)
  Sender: FDA-Public Use
  Company Number: JP-TYCO HEALTHCARE/MALLINCKRODT-T200900733

PATIENT
  Age: 74 Year
  Sex: Male

DRUGS (8)
  1. OPTIRAY 300 [Suspect]
     Indication: COMPUTERISED TOMOGRAM
     Dosage: 100 ML, SINGLE
     Route: 042
     Dates: start: 20090317, end: 20090317
  2. MAGNESIUM OXIDE [Concomitant]
     Indication: CONSTIPATION
     Dosage: 2 TAB, TID
     Route: 048
     Dates: start: 20080229
  3. FERROUS SULFATE TAB [Concomitant]
     Indication: ANAEMIA
     Dosage: UNK
     Route: 048
     Dates: start: 20080229
  4. NAPROXEN [Concomitant]
     Indication: PAIN
     Dosage: UNK
     Route: 048
     Dates: start: 20080229
  5. ACETAMINOPHEN [Concomitant]
     Indication: PAIN
     Dosage: UNK
     Route: 048
     Dates: start: 20080229
  6. SPIRONOLACTONE [Concomitant]
     Indication: OEDEMA
     Dosage: 50 MG, QD
     Route: 048
     Dates: start: 20080229
  7. FUROSEMIDE [Concomitant]
     Indication: OEDEMA
     Dosage: 40 MG, QD
     Dates: start: 20080229
  8. FELBINAC [Concomitant]
     Indication: PAIN
     Dosage: UNK
     Route: 061
     Dates: start: 20080229

REACTIONS (2)
  - BLOOD PRESSURE DECREASED [None]
  - CLONIC CONVULSION [None]
